FAERS Safety Report 8093627-X (Version None)
Quarter: 2012Q1

REPORT INFORMATION
  Report Type: 
  Country: None (occurrence: None)
  Receive Date: 20120129
  Receipt Date: 20110929
  Transmission Date: 20120608
  Serious: No
  Sender: FDA-Public Use
  Company Number: US-ABBOTT-11P-163-0859782-00

PATIENT
  Age: 43 Year
  Sex: Male

DRUGS (3)
  1. HUMIRA [Suspect]
     Indication: PSORIATIC ARTHROPATHY
     Dates: start: 20110819
  2. FAMOTIDINE [Concomitant]
     Indication: HYPERSENSITIVITY
  3. LORATADINE [Concomitant]
     Indication: HYPERSENSITIVITY

REACTIONS (1)
  - LOCAL SWELLING [None]
